FAERS Safety Report 10203984 (Version 2)
Quarter: 2014Q2

REPORT INFORMATION
  Report Type: Spontaneous
  Country: US (occurrence: None)
  Receive Date: 20140523
  Receipt Date: 20140623
  Transmission Date: 20141212
  Serious: Yes (Other)
  Sender: FDA-Public Use
  Company Number: UTC-045669

PATIENT
  Age: 58 Year
  Sex: Male
  Weight: 96.6 kg

DRUGS (4)
  1. REMODULIN [Suspect]
     Indication: PULMONARY ARTERIAL HYPERTENSION
     Dosage: 0.030 UG/KG/MIN, IV DRIP
     Route: 041
     Dates: start: 20140110
  2. LETAIRIS [Suspect]
     Indication: PULMONARY ARTERIAL HYPERTENSION
     Route: 048
     Dates: start: 20140117, end: 20140117
  3. REVATIO (SILDENAFIL CITRATE) [Concomitant]
  4. COUMADIN (WARFARIN SODIUM) [Concomitant]

REACTIONS (12)
  - Neuropathy peripheral [None]
  - Hypotension [None]
  - Dizziness [None]
  - Headache [None]
  - Pain in extremity [None]
  - Arthralgia [None]
  - Hypoaesthesia [None]
  - Irritability [None]
  - Rash [None]
  - Musculoskeletal pain [None]
  - Infusion site irritation [None]
  - Paraesthesia [None]
